FAERS Safety Report 8230188-6 (Version None)
Quarter: 2012Q1

REPORT INFORMATION
  Report Type: 
  Country: None (occurrence: None)
  Receive Date: 20120323
  Receipt Date: 20120313
  Transmission Date: 20120608
  Serious: Yes (Other)
  Sender: FDA-Public Use
  Company Number: US-RB-036547-12

PATIENT
  Age: 15 Year
  Sex: Male
  Weight: 99 kg

DRUGS (1)
  1. CLEARASIL PERFECTA WASH STARTER KIT [Suspect]
     Indication: PRODUCT USED FOR UNKNOWN INDICATION
     Route: 061
     Dates: start: 20120309

REACTIONS (3)
  - EYE SWELLING [None]
  - SWELLING FACE [None]
  - OCULAR HYPERAEMIA [None]
